FAERS Safety Report 11880089 (Version 1)
Quarter: 2015Q4

REPORT INFORMATION
  Report Type: Spontaneous
  Country: US (occurrence: US)
  Receive Date: 20151230
  Receipt Date: 20151230
  Transmission Date: 20160305
  Serious: Yes (Hospitalization)
  Sender: FDA-Public Use
  Company Number: US-MYLANLABS-2015M1047588

PATIENT

DRUGS (5)
  1. BENZATROPINE [Concomitant]
     Active Substance: BENZTROPINE
     Indication: PRODUCT USED FOR UNKNOWN INDICATION
     Dosage: DAILY
     Route: 048
  2. HALOPERIDOL. [Suspect]
     Active Substance: HALOPERIDOL
     Dosage: 50MG
     Route: 030
  3. HALOPERIDOL. [Suspect]
     Active Substance: HALOPERIDOL
     Indication: PSYCHOTIC DISORDER
     Dosage: 100MG, FOLLOWED BY ADDITIONAL 50MG IM DOSE A WEEK LATER
     Route: 030
  4. METAMFETAMINE [Suspect]
     Active Substance: METHAMPHETAMINE
     Indication: PRODUCT USED FOR UNKNOWN INDICATION
     Dosage: BOTH SMOKED AND IV, 3 TO 4 TIMES A WEEK
     Route: 042
  5. METAMFETAMINE [Suspect]
     Active Substance: METHAMPHETAMINE
     Dosage: BOTH SMOKED AND IV-3 TO 4 TIMES A WEEK
     Route: 055

REACTIONS (2)
  - Drug dependence [Unknown]
  - Parkinsonism [Unknown]
